FAERS Safety Report 13588415 (Version 5)
Quarter: 2017Q3

REPORT INFORMATION
  Report Type: Spontaneous
  Country: US (occurrence: US)
  Receive Date: 20170529
  Receipt Date: 20170725
  Transmission Date: 20171127
  Serious: Yes (Hospitalization, Other)
  Sender: FDA-Public Use
  Company Number: US-GLAXOSMITHKLINE-US2017GSK080371

PATIENT
  Age: 37 Year
  Sex: Female

DRUGS (4)
  1. COUMADIN [Concomitant]
     Active Substance: WARFARIN SODIUM
  2. FLOLAN [Suspect]
     Active Substance: EPOPROSTENOL SODIUM
     Indication: PULMONARY HYPERTENSION
     Dosage: 52 NG/KG/MIN, CO
     Route: 042
     Dates: start: 20060717
  3. FLOLAN [Suspect]
     Active Substance: EPOPROSTENOL SODIUM
     Indication: PULMONARY HYPERTENSION
     Dosage: UNK
  4. FLOLAN [Suspect]
     Active Substance: EPOPROSTENOL SODIUM
     Dosage: UNK

REACTIONS (7)
  - Dyspnoea [Unknown]
  - Troponin increased [Unknown]
  - Liver disorder [Unknown]
  - Fatigue [Unknown]
  - Cardioactive drug level increased [Unknown]
  - Pulmonary hypertension [Unknown]
  - Abdominal distension [Unknown]

NARRATIVE: CASE EVENT DATE: 201705
